FAERS Safety Report 8600587-9 (Version None)
Quarter: 2012Q3

REPORT INFORMATION
  Report Type: 
  Country: None (occurrence: None)
  Receive Date: 20120803
  Receipt Date: 20120725
  Transmission Date: 20120928
  Serious: Yes (Death)
  Sender: FDA-Public Use
  Company Number: 1363279

PATIENT
  Age: 59 Year
  Sex: Male

DRUGS (4)
  1. PEMETREXED [Suspect]
     Indication: LUNG ADENOCARCINOMA METASTATIC
     Dosage: UNKNOWN
  2. CARBOPLATIN [Suspect]
     Indication: LUNG ADENOCARCINOMA METASTATIC
     Dosage: UNKNOWN
  3. PACLITAXEL [Suspect]
     Indication: LUNG ADENOCARCINOMA METASTATIC
     Dosage: UNKNOWN
  4. THERAPEUTIC RADIOPHARMACEUTICALS [Suspect]
     Indication: LUNG CANCER METASTATIC
     Dosage: UNKNOWN

REACTIONS (3)
  - PULMONARY HAEMORRHAGE [None]
  - THROMBOTIC THROMBOCYTOPENIC PURPURA [None]
  - RESPIRATORY FAILURE [None]
